FAERS Safety Report 7477314-4 (Version None)
Quarter: 2011Q2

REPORT INFORMATION
  Report Type: 
  Country: None (occurrence: None)
  Receive Date: 20110513
  Receipt Date: 20110503
  Transmission Date: 20111010
  Serious: Yes (Hospitalization)
  Sender: FDA-Public Use
  Company Number: US-BIOGENIDEC-2011BI006398

PATIENT
  Age: 52 Year
  Sex: Male

DRUGS (2)
  1. AMPYRA [Concomitant]
     Dates: start: 20110201, end: 20110201
  2. TYSABRI [Suspect]
     Indication: MULTIPLE SCLEROSIS
     Route: 042
     Dates: start: 20091002

REACTIONS (3)
  - CYSTITIS [None]
  - WHITE BLOOD CELL COUNT INCREASED [None]
  - URINARY TRACT INFECTION [None]
